FAERS Safety Report 6166372-5 (Version None)
Quarter: 2009Q2

REPORT INFORMATION
  Report Type: 
  Country: None (occurrence: None)
  Receive Date: 20090424
  Receipt Date: 20090114
  Transmission Date: 20091009
  Serious: No
  Sender: FDA-Public Use
  Company Number: A0763432A

PATIENT
  Age: 38 Year
  Sex: Female

DRUGS (2)
  1. DEXEDRINE [Suspect]
     Dosage: 10MG THREE TIMES PER DAY
     Route: 048
     Dates: start: 20081010, end: 20090106
  2. ADDERALL XR 20 [Concomitant]

REACTIONS (4)
  - DYSPEPSIA [None]
  - EYE PAIN [None]
  - HEADACHE [None]
  - VISION BLURRED [None]
